FAERS Safety Report 9290753 (Version 1)
Quarter: 2013Q2

REPORT INFORMATION
  Report Type: Spontaneous
  Country: DK (occurrence: JP)
  Receive Date: 20130515
  Receipt Date: 20130515
  Transmission Date: 20140414
  Serious: Yes (Other)
  Sender: FDA-Public Use
  Company Number: JP-FRI-1000044717

PATIENT
  Age: 88 Year
  Sex: Female
  Weight: 42 kg

DRUGS (14)
  1. LEXAPRO [Suspect]
     Indication: DEPRESSION
     Dosage: 10 MG
     Route: 048
     Dates: start: 20120705, end: 20120712
  2. CLOTIAZEPAM [Interacting]
     Indication: DEPRESSION
     Dosage: 5 MG
     Route: 048
     Dates: start: 20120705, end: 20120712
  3. BAYASPIRIN [Concomitant]
     Indication: ANGINA PECTORIS
     Dosage: 100 MG
     Route: 048
     Dates: start: 20080531
  4. IRBETAN [Concomitant]
     Indication: HYPERTENSION
     Dosage: 50 MG
     Route: 048
     Dates: start: 20080531
  5. ARTIST [Concomitant]
     Indication: HYPERTENSION
     Dosage: 2.5 MG
     Route: 048
     Dates: start: 20110318
  6. TOWARAT-CR [Concomitant]
     Indication: HYPERTENSION
     Dosage: 20 MG
     Route: 048
     Dates: start: 20110113
  7. MEQUITOLIDE [Concomitant]
     Indication: VENTRICULAR EXTRASYSTOLES
     Route: 048
     Dates: start: 20080531
  8. VASOLATOR [Concomitant]
     Indication: ANGINA PECTORIS
     Dosage: 27 MG
     Route: 050
     Dates: start: 20080531
  9. CRESTOR [Concomitant]
     Indication: LIPIDS ABNORMAL
     Route: 048
     Dates: start: 20080531
  10. GLACTIV [Concomitant]
     Dosage: 50 MG
     Route: 048
  11. CELECOX [Concomitant]
     Dosage: 200 MG
     Route: 048
  12. ITOPRIDE HYDROCHLORIDE [Concomitant]
     Dosage: 150 MG
     Route: 048
  13. POCEVIN [Concomitant]
     Route: 030
  14. NITROGLYCERIN [Concomitant]
     Route: 060

REACTIONS (2)
  - Hypotension [Recovered/Resolved]
  - Drug interaction [Recovered/Resolved]
